FAERS Safety Report 4527797-4 (Version None)
Quarter: 2004Q4

REPORT INFORMATION
  Report Type: 
  Country: None (occurrence: None)
  Receive Date: 20041215
  Receipt Date: 20041118
  Transmission Date: 20050328
  Serious: Yes (Hospitalization)
  Sender: FDA-Public Use
  Company Number: JP-GLAXOSMITHKLINE-B0357482A

PATIENT
  Age: 42 Year
  Sex: Male

DRUGS (8)
  1. COMBIVIR [Suspect]
     Indication: HIV INFECTION
     Dosage: 2TAB PER DAY
     Route: 048
     Dates: start: 20000606
  2. EFAVIRENZ [Suspect]
     Indication: HIV INFECTION
     Dosage: 600MG PER DAY
     Route: 048
     Dates: start: 20000606
  3. AMLODIPINE BESYLATE [Concomitant]
  4. ENALAPRIL MALEATE [Concomitant]
  5. MEFENAMIC ACID [Concomitant]
  6. ANTIHEMOPHILIC FACTOR (HUMAN) [Concomitant]
  7. OMEPRAZOLE [Concomitant]
  8. BISOPROLOL FUMARATE [Concomitant]

REACTIONS (3)
  - ANAEMIA [None]
  - GASTRIC ULCER [None]
  - HAEMATEMESIS [None]
